FAERS Safety Report 12494321 (Version 1)
Quarter: 2016Q2

REPORT INFORMATION
  Report Type: Spontaneous
  Country: FR (occurrence: FR)
  Receive Date: 20160623
  Receipt Date: 20160623
  Transmission Date: 20160815
  Serious: Yes (Hospitalization, Other)
  Sender: FDA-Public Use
  Company Number: FR-GILEAD-2016-0218750

PATIENT
  Age: 78 Year
  Sex: Male

DRUGS (7)
  1. GLICLAZIDE [Concomitant]
     Active Substance: GLICLAZIDE
     Dosage: 30 MG, UNK, 4-0-0
  2. JANUMET [Concomitant]
     Active Substance: METFORMIN HYDROCHLORIDE\SITAGLIPTIN PHOSPHATE
     Dosage: 50/100 MG 1-0-1
  3. LANTUS [Concomitant]
     Active Substance: INSULIN GLARGINE
     Dosage: 12IU 1 INJECTION IN THE MORNING
     Route: 058
  4. FLECAINE [Concomitant]
     Active Substance: FLECAINIDE
     Dosage: 50 MG 1-0-1
  5. PANTOPRAZOLE [Concomitant]
     Active Substance: PANTOPRAZOLE SODIUM
     Indication: ABDOMINAL PAIN UPPER
  6. ZYDELIG [Suspect]
     Active Substance: IDELALISIB
     Indication: B-CELL LYMPHOMA
     Dosage: 150 MG, BID
     Route: 048
     Dates: start: 20160225, end: 20160523
  7. ZELITREX [Concomitant]
     Active Substance: VALACYCLOVIR HYDROCHLORIDE
     Dosage: 500 MG, UNK, 1-0-0

REACTIONS (4)
  - Leukopenia [Not Recovered/Not Resolved]
  - Mixed liver injury [Recovering/Resolving]
  - Pneumonitis [Recovering/Resolving]
  - Neutropenia [Not Recovered/Not Resolved]

NARRATIVE: CASE EVENT DATE: 20160420
